FAERS Safety Report 23396929 (Version 1)
Quarter: 2024Q1

REPORT INFORMATION
  Report Type: Spontaneous
  Country: IN (occurrence: IN)
  Receive Date: 20240112
  Receipt Date: 20240112
  Transmission Date: 20240410
  Serious: Yes (Other)
  Sender: FDA-Public Use
  Company Number: IN-009507513-2401IND004257

PATIENT
  Age: 63 Year
  Sex: Female

DRUGS (3)
  1. PEMBROLIZUMAB [Suspect]
     Active Substance: PEMBROLIZUMAB
     Indication: Soft tissue sarcoma
     Dosage: 200 MILLIGRAM
     Dates: start: 201905
  2. PEMBROLIZUMAB [Suspect]
     Active Substance: PEMBROLIZUMAB
     Dosage: 200 MILLIGRAM
     Route: 042
  3. PAZOPANIB [Concomitant]
     Active Substance: PAZOPANIB
     Indication: Soft tissue sarcoma
     Dosage: 800 MILLIGRAM, QD
     Dates: start: 201905

REACTIONS (5)
  - Idiopathic interstitial pneumonia [Unknown]
  - Pneumonitis [Unknown]
  - Hypothyroidism [Unknown]
  - Infusion related reaction [Unknown]
  - Hypertension [Unknown]

NARRATIVE: CASE EVENT DATE: 20200801
